FAERS Safety Report 13131967 (Version 6)
Quarter: 2018Q1

REPORT INFORMATION
  Report Type: Report from Study
  Country: DE (occurrence: DE)
  Receive Date: 20170119
  Receipt Date: 20180129
  Transmission Date: 20180508
  Serious: Yes (Death, Hospitalization, Other)
  Sender: FDA-Public Use
  Company Number: DE-B.I. PHARMACEUTICALS,INC./RIDGEFIELD-2016-BI-076536

PATIENT
  Age: 68 Year
  Sex: Male
  Weight: 74 kg

DRUGS (6)
  1. VARGATEF [Suspect]
     Active Substance: NINTEDANIB
     Indication: BRONCHIAL DISORDER
     Route: 048
     Dates: start: 20161123, end: 20161128
  2. VARGATEF [Suspect]
     Active Substance: NINTEDANIB
     Route: 048
     Dates: start: 20161217, end: 20161226
  3. PANTOLOC [Concomitant]
     Active Substance: PANTOPRAZOLE SODIUM
     Indication: PRODUCT USED FOR UNKNOWN INDICATION
     Route: 065
  4. PARACODIN [Concomitant]
     Active Substance: DIHYDROCODEINE BITARTRATE
     Indication: PRODUCT USED FOR UNKNOWN INDICATION
     Dosage: 30 GTT
     Route: 065
  5. VARGATEF [Suspect]
     Active Substance: NINTEDANIB
     Indication: NON-SMALL CELL LUNG CANCER
     Route: 048
     Dates: start: 20161101, end: 20161120
  6. DOCETAXEL. [Concomitant]
     Active Substance: DOCETAXEL
     Indication: BRONCHIAL NEOPLASM
     Dosage: FORM OF ADMINISTRATION: SOLUTION, UNIT DOSE: 75UG/M2
     Route: 042
     Dates: start: 20161031, end: 20161031

REACTIONS (6)
  - Pneumonia [Recovered/Resolved]
  - Malignant neoplasm progression [Fatal]
  - Post procedural haemorrhage [Recovered/Resolved]
  - Pneumonia [Not Recovered/Not Resolved]
  - Diarrhoea [Recovered/Resolved]
  - Dyspnoea [Not Recovered/Not Resolved]

NARRATIVE: CASE EVENT DATE: 20161104
